FAERS Safety Report 21019893 (Version 2)
Quarter: 2024Q1

REPORT INFORMATION
  Report Type: Report from Study
  Country: US (occurrence: US)
  Receive Date: 20220628
  Receipt Date: 20240308
  Transmission Date: 20240410
  Serious: Yes (Hospitalization, Other)
  Sender: FDA-Public Use
  Company Number: US-JAZZ-2022-US-010816

PATIENT
  Sex: Male

DRUGS (22)
  1. XYWAV [Suspect]
     Active Substance: CALCIUM OXYBATE\MAGNESIUM OXYBATE\POTASSIUM OXYBATE\SODIUM OXYBATE
     Indication: Narcolepsy
     Dosage: 3.75 GRAM, BID
     Route: 048
     Dates: start: 202105
  2. XYWAV [Suspect]
     Active Substance: CALCIUM OXYBATE\MAGNESIUM OXYBATE\POTASSIUM OXYBATE\SODIUM OXYBATE
     Dosage: 3.5 GRAM, BID
  3. XYWAV [Suspect]
     Active Substance: CALCIUM OXYBATE\MAGNESIUM OXYBATE\POTASSIUM OXYBATE\SODIUM OXYBATE
     Dosage: UNK
  4. XYWAV [Suspect]
     Active Substance: CALCIUM OXYBATE\MAGNESIUM OXYBATE\POTASSIUM OXYBATE\SODIUM OXYBATE
     Dosage: UNK
  5. CENTRUM SILVER [ASCORBIC ACID;CALCIUM;MINERALS NOS;RETINOL;TOCOPHERYL [Concomitant]
     Indication: Product used for unknown indication
     Dosage: UNK, QD
     Dates: start: 20150107
  6. POTASSIUM CHLORIDE [Concomitant]
     Active Substance: POTASSIUM CHLORIDE
     Indication: Product used for unknown indication
     Dosage: UNK
     Route: 048
     Dates: start: 20150107
  7. NORMODYNE [Concomitant]
     Active Substance: LABETALOL HYDROCHLORIDE
     Indication: Product used for unknown indication
     Dosage: UNK
     Route: 048
     Dates: start: 20150107
  8. NORMODYNE [Concomitant]
     Active Substance: LABETALOL HYDROCHLORIDE
     Dosage: 400 MILLIGRAM, BID
     Route: 048
  9. PRINIVIL [Concomitant]
     Active Substance: LISINOPRIL
     Indication: Product used for unknown indication
     Dosage: UNK, QD
     Dates: start: 20150107
  10. PRINIVIL [Concomitant]
     Active Substance: LISINOPRIL
     Dosage: 40 MILLIGRAM, QD, NIGHTLY
     Route: 048
  11. CATAPRES [Concomitant]
     Active Substance: CLONIDINE HYDROCHLORIDE
     Indication: Product used for unknown indication
     Dosage: UNK, QD
     Dates: start: 20170503
  12. CATAPRES [Concomitant]
     Active Substance: CLONIDINE HYDROCHLORIDE
     Dosage: 0.3MG/24HR, 1 PATCH BY TRANSDERMAL ROUTE EVERY 7 DAYS
  13. METHOCARBAMOL [Concomitant]
     Active Substance: METHOCARBAMOL
     Indication: Product used for unknown indication
     Dosage: UNK
     Dates: start: 20220411
  14. GABAPENTIN [Concomitant]
     Active Substance: GABAPENTIN
     Indication: Product used for unknown indication
     Dosage: UNK
     Dates: start: 20230401
  15. HYGROTON [Concomitant]
     Active Substance: CHLORTHALIDONE
     Indication: Product used for unknown indication
     Dosage: UNK
  16. ZAROXOLYN [Concomitant]
     Active Substance: METOLAZONE
     Indication: Product used for unknown indication
     Dosage: UNK
     Route: 048
  17. NORVASC [Concomitant]
     Active Substance: AMLODIPINE BESYLATE
     Indication: Product used for unknown indication
     Dosage: UNK
     Route: 048
  18. NORVASC [Concomitant]
     Active Substance: AMLODIPINE BESYLATE
     Dosage: 5 MILLIGRAM, BID
     Route: 048
  19. ALDACTONE [Concomitant]
     Active Substance: SPIRONOLACTONE
     Indication: Product used for unknown indication
     Dosage: 25 MILLIGRAM, QD
     Route: 048
  20. RESTASIS [Concomitant]
     Active Substance: CYCLOSPORINE
     Indication: Product used for unknown indication
     Dosage: OPHTHALMIO EMULSION
  21. DEMADEX [Concomitant]
     Active Substance: TORSEMIDE
     Indication: Product used for unknown indication
     Dosage: 20 MILLIGRAM, BID
     Route: 048
  22. NORCO [Concomitant]
     Active Substance: ACETAMINOPHEN\HYDROCODONE BITARTRATE
     Dosage: 1 TABLET BY MMOUTH EVEERY 6 HRS AS NEEDED
     Route: 048

REACTIONS (5)
  - Intervertebral disc protrusion [Unknown]
  - Nerve compression [Unknown]
  - Hallucination [Unknown]
  - Tremor [Not Recovered/Not Resolved]
  - Headache [Unknown]
